FAERS Safety Report 11125584 (Version 2)
Quarter: 2016Q2

REPORT INFORMATION
  Report Type: Spontaneous
  Country: US (occurrence: US)
  Receive Date: 20150520
  Receipt Date: 20160530
  Transmission Date: 20160815
  Serious: Yes (Other)
  Sender: FDA-Public Use
  Company Number: US-PFIZER INC-2015169099

PATIENT
  Age: 81 Year
  Sex: Male
  Weight: 78.47 kg

DRUGS (5)
  1. DIOVAN [Concomitant]
     Active Substance: VALSARTAN
     Indication: HYPERTENSION
     Dosage: 80 MG, UNK
  2. HYDROCHLOROTHIAZIDE. [Concomitant]
     Active Substance: HYDROCHLOROTHIAZIDE
     Indication: BLOOD PRESSURE MEASUREMENT
     Dosage: 12.5 MG, UNK
  3. PRILOSEC [Concomitant]
     Active Substance: OMEPRAZOLE MAGNESIUM
     Indication: HIATUS HERNIA
     Dosage: 20 MG, UNK
  4. SUTENT [Suspect]
     Active Substance: SUNITINIB MALATE
     Indication: CARCINOID SYNDROME
     Dosage: 37.5 MG, DAILY 1 WEEK ON AND 1 WEEK OFF
     Dates: start: 20140501
  5. SUTENT [Suspect]
     Active Substance: SUNITINIB MALATE
     Dosage: 2 MG, 2X/DAY
     Route: 048
     Dates: start: 201503

REACTIONS (6)
  - Flatulence [Recovering/Resolving]
  - Diarrhoea [Recovering/Resolving]
  - Haemorrhage [Unknown]
  - Dysgeusia [Unknown]
  - Asthenia [Recovering/Resolving]
  - Decreased appetite [Unknown]
